FAERS Safety Report 7803797-3 (Version None)
Quarter: 2011Q4

REPORT INFORMATION
  Report Type: 
  Country: None (occurrence: None)
  Receive Date: 20111010
  Receipt Date: 20110929
  Transmission Date: 20120403
  Serious: Yes (Other)
  Sender: FDA-Public Use
  Company Number: US-ELI_LILLY_AND_COMPANY-US201110000225

PATIENT
  Sex: Female

DRUGS (2)
  1. HUMALOG [Suspect]
     Dosage: 12 U, TID
     Dates: start: 20110101
  2. HUMALOG [Suspect]
     Indication: DIABETES MELLITUS
     Dosage: 12 U, TID

REACTIONS (5)
  - TERMINAL STATE [None]
  - TRANSFUSION [None]
  - PLATELET COUNT DECREASED [None]
  - DRUG DOSE OMISSION [None]
  - CONTUSION [None]
